FAERS Safety Report 11396928 (Version 1)
Quarter: 2015Q3

REPORT INFORMATION
  Report Type: Spontaneous
  Country: US (occurrence: US)
  Receive Date: 20150819
  Receipt Date: 20150819
  Transmission Date: 20151125
  Serious: No
  Sender: FDA-Public Use
  Company Number: US-PFIZER INC-2015272009

PATIENT
  Sex: Male

DRUGS (1)
  1. VIAGRA [Suspect]
     Active Substance: SILDENAFIL CITRATE
     Dosage: 50 MG, UNK

REACTIONS (8)
  - Burning sensation [Unknown]
  - Body temperature decreased [Unknown]
  - Erythema [Unknown]
  - Nausea [Unknown]
  - Drug ineffective [Unknown]
  - Feeling hot [Unknown]
  - Headache [Unknown]
  - Flushing [Unknown]
